FAERS Safety Report 16780129 (Version 1)
Quarter: 2019Q3

REPORT INFORMATION
  Report Type: Spontaneous
  Country: CN (occurrence: CN)
  Receive Date: 20190906
  Receipt Date: 20190906
  Transmission Date: 20191005
  Serious: Yes (Other)
  Sender: FDA-Public Use
  Company Number: CN-ROCHE-2394677

PATIENT
  Age: 34 Year
  Sex: Male

DRUGS (16)
  1. AVASTIN [Suspect]
     Active Substance: BEVACIZUMAB
     Indication: METASTASES TO LIVER
  2. OXALIPLATIN. [Concomitant]
     Active Substance: OXALIPLATIN
     Indication: ADENOCARCINOMA OF COLON
     Route: 065
     Dates: start: 201710, end: 201804
  3. REGORAFENIB. [Concomitant]
     Active Substance: REGORAFENIB
     Indication: ADENOCARCINOMA OF COLON
     Route: 065
     Dates: start: 20190101
  4. FRUQUINTINIB. [Concomitant]
     Active Substance: FRUQUINTINIB
     Indication: METASTASES TO LIVER
  5. TRIFLURIDINE. [Concomitant]
     Active Substance: TRIFLURIDINE
     Indication: ADENOCARCINOMA OF COLON
     Route: 065
     Dates: start: 20190101
  6. AVASTIN [Suspect]
     Active Substance: BEVACIZUMAB
     Indication: ADENOCARCINOMA OF COLON
     Route: 065
     Dates: start: 201710, end: 201804
  7. FLUOROURACIL. [Concomitant]
     Active Substance: FLUOROURACIL
     Indication: METASTASES TO LIVER
  8. FRUQUINTINIB. [Concomitant]
     Active Substance: FRUQUINTINIB
     Indication: ADENOCARCINOMA OF COLON
     Route: 065
     Dates: start: 20190101
  9. TRIFLURIDINE. [Concomitant]
     Active Substance: TRIFLURIDINE
     Indication: METASTASES TO LIVER
  10. FLUOROURACIL. [Concomitant]
     Active Substance: FLUOROURACIL
     Indication: ADENOCARCINOMA OF COLON
     Route: 065
     Dates: start: 201710, end: 201804
  11. REGORAFENIB. [Concomitant]
     Active Substance: REGORAFENIB
     Indication: METASTASES TO LIVER
  12. CALCIUM FOLINATE [Concomitant]
     Active Substance: LEUCOVORIN CALCIUM
     Indication: ADENOCARCINOMA OF COLON
     Route: 065
     Dates: start: 201710, end: 201804
  13. OXALIPLATIN. [Concomitant]
     Active Substance: OXALIPLATIN
     Indication: METASTASES TO LIVER
  14. TIPIRACIL [Concomitant]
     Active Substance: TIPIRACIL
     Indication: ADENOCARCINOMA OF COLON
     Route: 065
     Dates: start: 2019
  15. TIPIRACIL [Concomitant]
     Active Substance: TIPIRACIL
     Indication: METASTASES TO LIVER
  16. CALCIUM FOLINATE [Concomitant]
     Active Substance: LEUCOVORIN CALCIUM
     Indication: METASTASES TO LIVER

REACTIONS (1)
  - Anaphylactic shock [Recovered/Resolved]

NARRATIVE: CASE EVENT DATE: 201804
